FAERS Safety Report 7367707-8 (Version None)
Quarter: 2011Q1

REPORT INFORMATION
  Report Type: 
  Country: None (occurrence: None)
  Receive Date: 20110307
  Receipt Date: 20110301
  Transmission Date: 20110831
  Serious: Yes (Hospitalization)
  Sender: FDA-Public Use
  Company Number: 2011SP007526

PATIENT
  Age: 59 Year
  Sex: Female

DRUGS (11)
  1. SYMBICORT [Concomitant]
  2. CELESTONE [Suspect]
     Indication: SCIATICA
     Dosage: 2 MG, BID
     Dates: start: 20110127, end: 20110205
  3. CELESTONE [Suspect]
     Indication: HYPERAESTHESIA
     Dosage: 2 MG, BID
     Dates: start: 20110127, end: 20110205
  4. ALPRAZOLAM [Concomitant]
  5. CRESTPR [Concomitant]
  6. PANOS [Concomitant]
  7. SERESTA [Concomitant]
  8. PROZAC [Concomitant]
  9. KLIPAL CODEINE (PANADEINE CO) [Suspect]
     Indication: SCIATICA
     Dosage: 1 DF, BID
     Dates: start: 20110101
  10. KLIPAL CODEINE (PANADEINE CO) [Suspect]
     Indication: HYPERAESTHESIA
     Dosage: 1 DF, BID
     Dates: start: 20110101
  11. MYOLASTAN [Concomitant]

REACTIONS (10)
  - PSYCHOMOTOR HYPERACTIVITY [None]
  - FEELING HOT [None]
  - TREMOR [None]
  - CONFUSIONAL STATE [None]
  - INCREASED APPETITE [None]
  - APHASIA [None]
  - COORDINATION ABNORMAL [None]
  - MENTAL STATUS CHANGES [None]
  - PERIPHERAL COLDNESS [None]
  - OEDEMA PERIPHERAL [None]
